FAERS Safety Report 20677317 (Version 2)
Quarter: 2022Q2

REPORT INFORMATION
  Report Type: Spontaneous
  Country: CZ (occurrence: CZ)
  Receive Date: 20220406
  Receipt Date: 20220413
  Transmission Date: 20220721
  Serious: Yes (Other)
  Sender: FDA-Public Use
  Company Number: CZ-TEVA-2022-CZ-2023558

PATIENT

DRUGS (9)
  1. DOXORUBICIN [Suspect]
     Active Substance: DOXORUBICIN
     Indication: Hodgkin^s disease
     Dosage: RECEIVED 2 CYCLES OF ABVD REGIMEN AND 2 CYCLES OF BEACOPP ESCALATED REGIMEN
     Route: 065
  2. VINBLASTINE [Suspect]
     Active Substance: VINBLASTINE
     Indication: Hodgkin^s disease
     Dosage: RECEIVED 2 CYCLES OF ABVD REGIMEN
     Route: 065
  3. ETOPOSIDE [Suspect]
     Active Substance: ETOPOSIDE
     Indication: Hodgkin^s disease
     Dosage: RECEIVED 2 CYCLES OF BEACOPP ESCALATED REGIMEN
     Route: 065
  4. VINCRISTINE [Suspect]
     Active Substance: VINCRISTINE
     Indication: Hodgkin^s disease
     Dosage: RECEIVED 2 CYCLES OF BEACOPP ESCALATED REGIMEN
     Route: 065
  5. BLEOMYCIN [Suspect]
     Active Substance: BLEOMYCIN SULFATE
     Indication: Hodgkin^s disease
     Dosage: RECEIVED 2 CYCLES OF ABVD REGIMEN AND 2 CYCLES OF BEACOPP ESCALATED REGIMEN
     Route: 065
  6. DACARBAZINE [Suspect]
     Active Substance: DACARBAZINE
     Indication: Hodgkin^s disease
     Dosage: RECEIVED 2 CYCLES OF ABVD REGIMEN
     Route: 065
  7. CYCLOPHOSPHAMIDE [Suspect]
     Active Substance: CYCLOPHOSPHAMIDE
     Indication: Hodgkin^s disease
     Dosage: RECEIVED 2 CYCLES OF BEACOPP ESCALATED REGIMEN
     Route: 065
  8. PROCARBAZINE [Suspect]
     Active Substance: PROCARBAZINE
     Indication: Hodgkin^s disease
     Dosage: RECEIVED 2 CYCLES OF BEACOPP ESCALATED REGIMEN
     Route: 065
  9. PREDNISONE [Suspect]
     Active Substance: PREDNISONE
     Indication: Hodgkin^s disease
     Dosage: RECEIVED 2 CYCLES OF BEACOPP ESCALATED REGIMEN
     Route: 065

REACTIONS (1)
  - Deep vein thrombosis [Unknown]
